FAERS Safety Report 8717858 (Version 2)
Quarter: 2012Q4

REPORT INFORMATION
  Report Type: Report from Study
  Country: DE (occurrence: DE)
  Receive Date: 20120810
  Receipt Date: 20121004
  Transmission Date: 20130627
  Serious: Yes (Life-Threatening, Hospitalization)
  Sender: FDA-Public Use
  Company Number: DE-ABBOTT-12P-062-0955637-00

PATIENT
  Age: 69 Year
  Sex: Female
  Weight: 76 kg

DRUGS (4)
  1. HUMIRA 40 MG/ 0.8 ML PRE-FILLED SYRINGE [Suspect]
     Indication: PRODUCT USED FOR UNKNOWN INDICATION
     Dates: start: 200001
  2. HUMIRA [Suspect]
     Indication: PRODUCT USED FOR UNKNOWN INDICATION
     Route: 058
     Dates: end: 20120627
  3. METHOTREXATE [Concomitant]
     Dates: start: 200001
  4. GLUCOCORTICOIDS [Concomitant]

REACTIONS (8)
  - Systemic inflammatory response syndrome [Recovering/Resolving]
  - Bronchitis [Recovering/Resolving]
  - Urinary tract infection [Recovering/Resolving]
  - Urinary tract infection [Recovering/Resolving]
  - Bacteraemia [Recovering/Resolving]
  - Escherichia urinary tract infection [Recovering/Resolving]
  - Procalcitonin increased [Recovering/Resolving]
  - C-reactive protein increased [Recovering/Resolving]
